FAERS Safety Report 5949529-5 (Version None)
Quarter: 2008Q4

REPORT INFORMATION
  Report Type: 
  Country: None (occurrence: None)
  Receive Date: 20081112
  Receipt Date: 20081107
  Transmission Date: 20090506
  Serious: Yes (Death)
  Sender: FDA-Public Use
  Company Number: PHHY2008CA27035

PATIENT
  Sex: Male

DRUGS (12)
  1. CLOZARIL [Suspect]
     Dosage: 100 MG, BID
     Dates: start: 19950529, end: 20081031
  2. CLOZARIL [Suspect]
     Dosage: 200 MG, QHS
     Route: 048
     Dates: start: 19950101, end: 20081031
  3. NORVASC [Concomitant]
  4. ASPIRIN [Suspect]
  5. RABEPRAZOLE SODIUM [Concomitant]
  6. RAMIPRIL [Concomitant]
  7. FERROUS GLUCONATE [Concomitant]
  8. CRESTOR [Concomitant]
  9. METOPROLOL TARTRATE [Concomitant]
  10. RANITIDINE [Concomitant]
  11. METFORMIN HCL [Concomitant]
  12. LOVAZA [Concomitant]

REACTIONS (5)
  - LOSS OF CONSCIOUSNESS [None]
  - MYOCARDIAL INFARCTION [None]
  - PULSE ABSENT [None]
  - PUPIL FIXED [None]
  - RESPIRATORY ARREST [None]
